FAERS Safety Report 5152550-0 (Version None)
Quarter: 2006Q4

REPORT INFORMATION
  Report Type: 
  Country: None (occurrence: None)
  Receive Date: 20061116
  Receipt Date: 20061107
  Transmission Date: 20070319
  Serious: Yes (Death)
  Sender: FDA-Public Use
  Company Number: US-ROXANE LABORATORIES, INC-2006-DE-05873GD

PATIENT
  Age: 42 Year
  Sex: Female
  Weight: 72 kg

DRUGS (8)
  1. MORPHINE [Suspect]
  2. CYMBALTA [Suspect]
  3. MIRTAZAPINE [Suspect]
  4. FLUOXETINE [Suspect]
  5. ALPRAZOLAM [Suspect]
  6. LORAZEPAM [Suspect]
  7. TEMAZEPAM [Suspect]
  8. MEPROBAMATE [Suspect]

REACTIONS (5)
  - COMPLETED SUICIDE [None]
  - DRUG ABUSER [None]
  - LOSS OF CONSCIOUSNESS [None]
  - NARCOTIC INTOXICATION [None]
  - UNRESPONSIVE TO STIMULI [None]
